FAERS Safety Report 19636662 (Version 2)
Quarter: 2021Q3

REPORT INFORMATION
  Report Type: Spontaneous
  Country: US (occurrence: US)
  Receive Date: 20210729
  Receipt Date: 20210805
  Transmission Date: 20211014
  Serious: Yes (Hospitalization)
  Sender: FDA-Public Use
  Company Number: US-TEVA-2021-US-1935870

PATIENT
  Age: 23 Year
  Sex: Female

DRUGS (3)
  1. INFLIXIMAB [Suspect]
     Active Substance: INFLIXIMAB
     Indication: COLITIS ULCERATIVE
     Route: 050
  2. PREDNISONE. [Suspect]
     Active Substance: PREDNISONE
     Indication: COLITIS ULCERATIVE
     Dosage: WITH TAPER
     Route: 065
  3. BALSALAZIDE [Suspect]
     Active Substance: BALSALAZIDE
     Indication: COLITIS ULCERATIVE
     Dosage: 6.75 GRAM DAILY; THREE TIMES DAILY
     Route: 048

REACTIONS (3)
  - Pulmonary embolism [Recovering/Resolving]
  - Drug ineffective [Unknown]
  - Cardiac ventricular thrombosis [Recovering/Resolving]
